FAERS Safety Report 7729031-0 (Version None)
Quarter: 2011Q3

REPORT INFORMATION
  Report Type: 
  Country: None (occurrence: None)
  Receive Date: 20110906
  Receipt Date: 20110826
  Transmission Date: 20111222
  Serious: Yes (Other)
  Sender: FDA-Public Use
  Company Number: JP-JNJFOC-20110813534

PATIENT
  Age: 69 Year
  Sex: Female

DRUGS (2)
  1. REMICADE [Suspect]
     Indication: RHEUMATOID ARTHRITIS
     Route: 042
     Dates: start: 20101216
  2. REMICADE [Suspect]
     Route: 042

REACTIONS (2)
  - TUBERCULOSIS [None]
  - RESPIRATORY TRACT INFECTION [None]
